FAERS Safety Report 9148772 (Version 1)
Quarter: 2013Q1

REPORT INFORMATION
  Report Type: Spontaneous
  Country: US (occurrence: None)
  Receive Date: 20130227
  Receipt Date: 20130227
  Transmission Date: 20140127
  Serious: Yes (Other)
  Sender: FDA-Public Use
  Company Number: None

PATIENT
  Age: 60 Year
  Sex: Female
  Weight: 84 kg

DRUGS (1)
  1. NERIUM OLEANDER EXTRACT [Suspect]
     Indication: SKIN DISORDER
     Dates: start: 20120901, end: 20130123

REACTIONS (7)
  - Liver function test abnormal [None]
  - Fatigue [None]
  - Diarrhoea [None]
  - Malaise [None]
  - Stress [None]
  - Economic problem [None]
  - Exposure via inhalation [None]
